FAERS Safety Report 8506832-2 (Version None)
Quarter: 2012Q3

REPORT INFORMATION
  Report Type: 
  Country: None (occurrence: None)
  Receive Date: 20120712
  Receipt Date: 20120712
  Transmission Date: 20120928
  Serious: Yes (Hospitalization)
  Sender: FDA-Public Use
  Company Number: IL-PFIZER INC-2012156261

PATIENT
  Age: 58 Year
  Sex: Female

DRUGS (8)
  1. GEODON [Suspect]
     Indication: BIPOLAR DISORDER
     Dosage: 40 MG, 2X/DAY
     Route: 048
     Dates: start: 20120101, end: 20120101
  2. CLONEX [Concomitant]
     Dosage: UNK
  3. GEODON [Suspect]
     Dosage: 40MG AND 80MG
     Route: 048
     Dates: start: 20120101
  4. GEODON [Suspect]
     Dosage: 60MG OR 80MG TWICE DAILY
     Dates: start: 20120101, end: 20120101
  5. GLUCOMIN [Concomitant]
     Indication: DIABETES MELLITUS
     Dosage: UNK
  6. GEODON [Suspect]
     Dosage: 20 MG, 2X/DAY
     Route: 048
     Dates: start: 20120101, end: 20120101
  7. TRAZODONE HYDROCHLORIDE [Concomitant]
     Indication: SLEEP DISORDER
     Dosage: UNK
  8. ZODORM [Concomitant]
     Indication: SLEEP DISORDER
     Dosage: 10 MG, UNK

REACTIONS (2)
  - PRESYNCOPE [None]
  - MANIA [None]
